FAERS Safety Report 4335985-5 (Version None)
Quarter: 2004Q2

REPORT INFORMATION
  Report Type: 
  Country: None (occurrence: None)
  Receive Date: 20040406
  Receipt Date: 20040325
  Transmission Date: 20050107
  Serious: Yes (Hospitalization)
  Sender: FDA-Public Use
  Company Number: HQWYE110125MAR04

PATIENT
  Age: 66 Year
  Sex: Male

DRUGS (5)
  1. CORDARONE [Suspect]
     Indication: CARDIAC DISORDER
     Dosage: SEE IMAGE
     Route: 048
     Dates: start: 20040101, end: 20040131
  2. CORDARONE [Suspect]
     Indication: CARDIAC DISORDER
     Dosage: SEE IMAGE
     Route: 048
     Dates: start: 20040201, end: 20040208
  3. CORDARONE [Suspect]
     Indication: CARDIAC DISORDER
     Dosage: SEE IMAGE
     Route: 048
     Dates: start: 20040209, end: 20040220
  4. LEVOTHYROXINE SODIUM [Concomitant]
  5. ZESTRIL [Concomitant]

REACTIONS (2)
  - HEART RATE INCREASED [None]
  - HEPATITIS [None]
